FAERS Safety Report 5146198-1 (Version None)
Quarter: 2006Q4

REPORT INFORMATION
  Report Type: 
  Country: None (occurrence: None)
  Receive Date: 20061108
  Receipt Date: 20061025
  Transmission Date: 20070319
  Serious: Yes (Other)
  Sender: FDA-Public Use
  Company Number: PHBS2006BR16776

PATIENT
  Age: 57 Year
  Sex: Female

DRUGS (3)
  1. GLEEVEC [Suspect]
     Indication: CHRONIC MYELOID LEUKAEMIA
     Dosage: 600 MG/DAY
     Route: 048
     Dates: start: 20060725, end: 20060913
  2. GLEEVEC [Suspect]
     Dosage: 300 MG/DAY
     Route: 048
     Dates: start: 20061002, end: 20061004
  3. GLEEVEC [Suspect]
     Dosage: 600 MG/DAY
     Route: 048
     Dates: start: 20061005

REACTIONS (9)
  - ABDOMINAL PAIN LOWER [None]
  - DERMATITIS ALLERGIC [None]
  - DYSURIA [None]
  - ECZEMA [None]
  - PANCYTOPENIA [None]
  - POLYURIA [None]
  - SKIN LESION [None]
  - URINARY RETENTION [None]
  - URINARY TRACT DISORDER [None]
